FAERS Safety Report 7388188-4 (Version None)
Quarter: 2011Q1

REPORT INFORMATION
  Report Type: 
  Country: None (occurrence: None)
  Receive Date: 20110324
  Receipt Date: 20110311
  Transmission Date: 20110831
  Serious: Yes (Hospitalization)
  Sender: FDA-Public Use
  Company Number: JP-1185399

PATIENT
  Age: 59 Year
  Sex: Male

DRUGS (7)
  1. RISUMIC [Concomitant]
  2. TIMOLOL MALEATE 0.5 % OPHTHALMIC SOLUTION (TIMOLOL) [Suspect]
     Indication: OCULAR HYPERTENSION
     Dosage: (1 GTT BID OU OPHTHALMIC)
     Route: 047
     Dates: start: 20101210, end: 20110311
  3. BIOFERMIN [Concomitant]
  4. SIGMART [Concomitant]
  5. BRINZOLAMIDE OPHTHALMIC SUSPENSION (BRINZOLAMIDE) [Suspect]
     Indication: OCULAR HYPERTENSION
     Dosage: (1 GTT BID OU OPHTHALMIC)
     Route: 047
     Dates: start: 20101211, end: 20110311
  6. NITROPEN [Concomitant]
  7. AMLODIPINE [Concomitant]

REACTIONS (1)
  - PRINZMETAL ANGINA [None]
